FAERS Safety Report 16789608 (Version 1)
Quarter: 2019Q3

REPORT INFORMATION
  Report Type: Other
  Country: FR (occurrence: FR)
  Receive Date: 20190910
  Receipt Date: 20190910
  Transmission Date: 20191005
  Serious: Yes (Other)
  Sender: FDA-Public Use
  Company Number: FR-ASTELLAS-2019US035517

PATIENT
  Age: 56 Year
  Sex: Female

DRUGS (3)
  1. DISULONE [Suspect]
     Active Substance: DAPSONE\FERROUS OXALATE
     Indication: DERMATOSIS
     Route: 048
     Dates: start: 20190630, end: 20190801
  2. VESICARE [Suspect]
     Active Substance: SOLIFENACIN SUCCINATE
     Indication: URINARY INCONTINENCE
     Route: 048
     Dates: start: 20190713, end: 20190801
  3. ESCITALOPRAM [Concomitant]
     Active Substance: ESCITALOPRAM OXALATE
     Indication: DEPRESSION
     Dosage: UNK, UNKNOWN FREQ.
     Route: 048
     Dates: start: 201902

REACTIONS (7)
  - Chills [Recovered/Resolved]
  - Asthenia [Recovered/Resolved]
  - Haemolytic anaemia [Recovered/Resolved]
  - Pain [Recovered/Resolved]
  - Headache [Recovered/Resolved]
  - Nausea [Recovered/Resolved]
  - Vomiting [Recovered/Resolved]

NARRATIVE: CASE EVENT DATE: 20190729
